FAERS Safety Report 5383947-1 (Version None)
Quarter: 2007Q3

REPORT INFORMATION
  Report Type: 
  Country: None (occurrence: None)
  Receive Date: 20070711
  Receipt Date: 20070629
  Transmission Date: 20080115
  Serious: Yes (Hospitalization)
  Sender: FDA-Public Use
  Company Number: CHWYE366705APR07

PATIENT
  Age: 85 Year
  Sex: Female

DRUGS (10)
  1. EFFEXOR [Interacting]
     Dosage: 75.0 MG PER DAY
     Route: 048
     Dates: end: 20070124
  2. EFFEXOR [Interacting]
     Dosage: 112.5 MG PER DAY
     Route: 048
     Dates: start: 20070125
  3. TORSEMIDE [Suspect]
     Route: 048
  4. SEROQUEL [Concomitant]
  5. CALCIMAGON [Concomitant]
  6. DIGOXIN [Concomitant]
  7. COVERSUM [Concomitant]
     Route: 048
  8. DILTIAZEM HYDROCHLORIDE [Concomitant]
     Route: 048
  9. ACETAMINOPHEN AND TRAMADOL HCL [Interacting]
     Route: 048
     Dates: start: 20070125
  10. ASPIRIN [Concomitant]
     Route: 048

REACTIONS (9)
  - CONFUSIONAL STATE [None]
  - DEHYDRATION [None]
  - DISTURBANCE IN ATTENTION [None]
  - DRUG INTERACTION [None]
  - DRUG LEVEL INCREASED [None]
  - FALL [None]
  - HEART RATE INCREASED [None]
  - HYPERTENSION [None]
  - SEROTONIN SYNDROME [None]
